FAERS Safety Report 11020190 (Version 1)
Quarter: 2015Q2

REPORT INFORMATION
  Report Type: Spontaneous
  Country: CN (occurrence: CN)
  Receive Date: 20150413
  Receipt Date: 20150413
  Transmission Date: 20150821
  Serious: Yes (Hospitalization)
  Sender: FDA-Public Use
  Company Number: CN-SYMPLMED PHARMACEUTICALS-2015SYM00055

PATIENT
  Age: 44 Year
  Sex: Male
  Weight: 60 kg

DRUGS (1)
  1. ACEON [Suspect]
     Active Substance: PERINDOPRIL ERBUMINE
     Indication: HYPERTENSION
     Dosage: 4 MG, QD
     Route: 048
     Dates: start: 20140220, end: 20140609

REACTIONS (2)
  - Cough [Recovered/Resolved]
  - Hyperaemia [Unknown]

NARRATIVE: CASE EVENT DATE: 20140309
